FAERS Safety Report 5314712-9 (Version None)
Quarter: 2007Q2

REPORT INFORMATION
  Report Type: 
  Country: None (occurrence: None)
  Receive Date: 20070427
  Receipt Date: 20070417
  Transmission Date: 20071010
  Serious: Yes (Other)
  Sender: FDA-Public Use
  Company Number: GXKR2007FR03347

PATIENT
  Age: 59 Year
  Sex: Male
  Weight: 88 kg

DRUGS (6)
  1. SERTRALINE [Suspect]
     Indication: DEPRESSION
     Dosage: 50 MG, QD, ORAL
     Route: 048
     Dates: start: 20060601
  2. PLAVIX [Concomitant]
  3. COVERSYL /FRA/ (PERINDOPRIL) [Concomitant]
  4. PROSCAR [Concomitant]
  5. INEGY (EZETIMIBE, SIMVASTATIN) [Concomitant]
  6. OMIX (TAMSULOSIN HYDROCHLORIDE) [Concomitant]

REACTIONS (8)
  - BURNING SENSATION [None]
  - DYSPNOEA [None]
  - EPIGLOTTITIS [None]
  - FOREIGN BODY TRAUMA [None]
  - PHARYNGITIS [None]
  - PYREXIA [None]
  - THROAT IRRITATION [None]
  - VOCAL CORD INFLAMMATION [None]
